FAERS Safety Report 14963389 (Version 1)
Quarter: 2018Q2

REPORT INFORMATION
  Report Type: Spontaneous
  Country: US (occurrence: US)
  Receive Date: 20180601
  Receipt Date: 20180601
  Transmission Date: 20180711
  Serious: No
  Sender: FDA-Public Use
  Company Number: US-ABBVIE-18P-163-2280339-00

PATIENT
  Sex: Female

DRUGS (4)
  1. TRAZODONE [Concomitant]
     Active Substance: TRAZODONE HYDROCHLORIDE
     Indication: PRODUCT USED FOR UNKNOWN INDICATION
  2. MARINOL [Suspect]
     Active Substance: DRONABINOL
     Indication: ANXIETY
  3. MARINOL [Suspect]
     Active Substance: DRONABINOL
     Indication: INSOMNIA
     Route: 048
     Dates: start: 20180207
  4. MARINOL [Suspect]
     Active Substance: DRONABINOL
     Indication: DEPRESSION

REACTIONS (1)
  - Off label use [Not Recovered/Not Resolved]
